FAERS Safety Report 5551690-1 (Version None)
Quarter: 2007Q4

REPORT INFORMATION
  Report Type: 
  Country: None (occurrence: None)
  Receive Date: 20071129
  Receipt Date: 20061127
  Transmission Date: 20080405
  Serious: Yes (Other)
  Sender: FDA-Public Use
  Company Number: PHEH2006US14619

PATIENT
  Age: 36 Year
  Sex: Female

DRUGS (1)
  1. LAMISIL [Suspect]
     Indication: NAIL TINEA
     Dosage: 250 MG, QD, ORAL
     Route: 048
     Dates: start: 20061023, end: 20061113

REACTIONS (1)
  - RASH GENERALISED [None]
